FAERS Safety Report 4884795-9 (Version None)
Quarter: 2006Q1

REPORT INFORMATION
  Report Type: 
  Country: None (occurrence: None)
  Receive Date: 20060119
  Receipt Date: 20060110
  Transmission Date: 20060701
  Serious: Yes (Other)
  Sender: FDA-Public Use
  Company Number: US-JNJFOC-20051206164

PATIENT
  Age: 49 Year
  Sex: Female

DRUGS (7)
  1. INFLIXIMAB [Suspect]
     Route: 042
  2. INFLIXIMAB [Suspect]
     Indication: DRUG USE FOR UNKNOWN INDICATION
     Route: 042
  3. METOPROLOL [Concomitant]
  4. CAPTOPRIL [Concomitant]
  5. METHOTREXATE [Concomitant]
     Indication: RHEUMATOID ARTHRITIS
     Route: 048
  6. ACETAMINOPHEN [Concomitant]
     Indication: PREMEDICATION
     Route: 048
  7. DIPHENHYDRAMINE [Concomitant]
     Indication: PREMEDICATION
     Route: 048

REACTIONS (4)
  - ACUTE CORONARY SYNDROME [None]
  - INFUSION RELATED REACTION [None]
  - MYOCARDIAL INFARCTION [None]
  - RHEUMATOID ARTHRITIS [None]
